FAERS Safety Report 15366762 (Version 1)
Quarter: 2018Q3

REPORT INFORMATION
  Report Type: Report from Study
  Country: ES (occurrence: ES)
  Receive Date: 20180910
  Receipt Date: 20180910
  Transmission Date: 20181010
  Serious: Yes (Other)
  Sender: FDA-Public Use
  Company Number: ES-PFIZER INC-2018362949

PATIENT
  Age: 71 Year
  Sex: Male

DRUGS (2)
  1. CYTARABINE. [Suspect]
     Active Substance: CYTARABINE
     Indication: ACUTE MYELOID LEUKAEMIA
     Dosage: 374 MG, (IN CONTINUOUS PERFUSION)
     Route: 042
     Dates: start: 20170721, end: 20170727
  2. CEFEPIME [Concomitant]
     Active Substance: CEFEPIME HYDROCHLORIDE
     Indication: PNEUMONIA
     Dosage: 2 G, 3X/DAY
     Route: 042
     Dates: start: 20170718, end: 20170731

REACTIONS (1)
  - Hepatitis [Recovered/Resolved]

NARRATIVE: CASE EVENT DATE: 20170722
